FAERS Safety Report 6393331-X (Version None)
Quarter: 2009Q4

REPORT INFORMATION
  Report Type: 
  Country: None (occurrence: None)
  Receive Date: 20091008
  Receipt Date: 20090926
  Transmission Date: 20100525
  Serious: Yes (Other)
  Sender: FDA-Public Use
  Company Number: US-JNJFOC-20090908862

PATIENT
  Age: 8 Year
  Sex: Male
  Weight: 32.66 kg

DRUGS (4)
  1. TYLENOL [Suspect]
     Route: 048
  2. TYLENOL [Suspect]
     Indication: PYREXIA
     Dosage: 320 MG EVERY 3-4 HOURS
     Route: 048
  3. TYLENOL (CAPLET) [Suspect]
     Route: 048
  4. TYLENOL (CAPLET) [Suspect]
     Indication: MALAISE
     Dosage: ^RECOMMENDED DOSE^
     Route: 048

REACTIONS (5)
  - BLISTER [None]
  - INCORRECT DOSE ADMINISTERED [None]
  - RESPIRATORY TRACT CONGESTION [None]
  - TRANSMISSION OF AN INFECTIOUS AGENT VIA A MEDICINAL PRODUCT [None]
  - VIRAL INFECTION [None]
